FAERS Safety Report 10589993 (Version 3)
Quarter: 2015Q1

REPORT INFORMATION
  Report Type: Spontaneous
  Country: FR (occurrence: FR)
  Receive Date: 20141118
  Receipt Date: 20150128
  Transmission Date: 20150720
  Serious: Yes (Hospitalization)
  Sender: FDA-Public Use
  Company Number: FR-SA-2014SA156983

PATIENT
  Age: 35 Year
  Sex: Male
  Weight: 88.9 kg

DRUGS (3)
  1. FABRAZYME [Suspect]
     Active Substance: AGALSIDASE BETA
     Route: 042
     Dates: start: 2003
  2. TEGRETOL [Concomitant]
     Active Substance: CARBAMAZEPINE
     Dates: start: 2003
  3. RAMIPRIL. [Concomitant]
     Active Substance: RAMIPRIL
     Dates: start: 20120731

REACTIONS (1)
  - Schizophrenia [Recovering/Resolving]
